FAERS Safety Report 6052354-0 (Version None)
Quarter: 2009Q1

REPORT INFORMATION
  Report Type: 
  Country: None (occurrence: None)
  Receive Date: 20090121
  Receipt Date: 20090113
  Transmission Date: 20090719
  Serious: Yes (Death, Hospitalization)
  Sender: FDA-Public Use
  Company Number: 2008US002244

PATIENT
  Age: 68 Year
  Sex: Male

DRUGS (5)
  1. VESICARE [Suspect]
     Indication: HYPERTONIC BLADDER
     Dosage: ORAL
     Route: 048
     Dates: start: 20080821, end: 20080821
  2. LISINOPRIL [Suspect]
     Indication: HYPERTENSION
     Dosage: 40 MG, UID/QD, ORAL
     Route: 048
  3. TERAZOSIN HCL [Concomitant]
  4. TRAMADOL HCL [Concomitant]
  5. ETODOLAC [Concomitant]

REACTIONS (4)
  - ANGIOEDEMA [None]
  - CARDIO-RESPIRATORY ARREST [None]
  - DYSPHAGIA [None]
  - SWOLLEN TONGUE [None]
